FAERS Safety Report 5521564-0 (Version None)
Quarter: 2007Q4

REPORT INFORMATION
  Report Type: 
  Country: None (occurrence: None)
  Receive Date: 20071115
  Receipt Date: 20071106
  Transmission Date: 20080405
  Serious: Yes (Hospitalization)
  Sender: FDA-Public Use
  Company Number: SPV1-2007-04797

PATIENT
  Age: 74 Year
  Sex: Male

DRUGS (13)
  1. 405 (LANTHANUM CARBONATE) (405 (LANTHANUM CARBONATE)) CHEWABLE TABLET [Suspect]
     Indication: HYPERPHOSPHATAEMIA
     Dosage: 1500MG, DAILY, ORAL
     Route: 048
     Dates: start: 20050329
  2. BAYASPRIN (ACETYLSALICYLIC ACID) [Concomitant]
  3. EYEDROITIN (CHONDROITIN SULFATE SODIUM) [Concomitant]
  4. MOHRUS YUTOKU (KETOPROFEN) [Concomitant]
  5. ROCALTROL [Concomitant]
  6. FAMOTIDINE [Concomitant]
  7. LENDORMIN DAINIPPO (BROTIZOLAM) [Concomitant]
  8. HEPARIN [Concomitant]
  9. EPOGEN [Concomitant]
  10. SENNOSIDE (SENNOSIDE A+B) [Concomitant]
  11. ISOTONIC SOLUTIONS [Concomitant]
  12. FERRICON (CIDEFERRON) [Concomitant]
  13. KIDMIN (AMINO ACIDS NOS) [Concomitant]

REACTIONS (5)
  - ABDOMINAL INFECTION [None]
  - ABDOMINAL PAIN [None]
  - OXYGEN SATURATION DECREASED [None]
  - PYREXIA [None]
  - WEIGHT INCREASED [None]
